FAERS Safety Report 11258484 (Version 2)
Quarter: 2015Q3

REPORT INFORMATION
  Report Type: Spontaneous
  Country: JP (occurrence: None)
  Receive Date: 20150708
  Receipt Date: 20150724
  Transmission Date: 20151125
  Serious: Yes (Life-Threatening)
  Sender: FDA-Public Use
  Company Number: CO-ZO-JP-2015-037

PATIENT
  Age: 69 Year
  Sex: Female

DRUGS (4)
  1. EXCEGRAN [Suspect]
     Active Substance: ZONISAMIDE
     Indication: EPILEPSY
     Dosage: UNKNOWN, ORAL
     Route: 048
     Dates: start: 20140604, end: 20140610
  2. CRESTOR [Concomitant]
     Active Substance: ROSUVASTATIN CALCIUM
  3. TAKEPRON (LANSOPRAZOLE) [Concomitant]
     Active Substance: LANSOPRAZOLE
  4. LENDORMIN (BROTIZOLAM) [Concomitant]

REACTIONS (5)
  - Liver disorder [None]
  - Aspartate aminotransferase increased [None]
  - Stevens-Johnson syndrome [None]
  - Nasopharyngitis [None]
  - Alanine aminotransferase increased [None]

NARRATIVE: CASE EVENT DATE: 20140623
